FAERS Safety Report 9777716 (Version 3)
Quarter: 2014Q1

REPORT INFORMATION
  Report Type: Spontaneous
  Country: BE (occurrence: BE)
  Receive Date: 20131223
  Receipt Date: 20140205
  Transmission Date: 20141002
  Serious: Yes (Hospitalization)
  Sender: FDA-Public Use
  Company Number: BE-BEH-2013039325

PATIENT
  Age: 6 Month
  Sex: Male

DRUGS (12)
  1. HIZENTRA [Suspect]
     Indication: HYPOGAMMAGLOBULINAEMIA
     Route: 058
     Dates: start: 20131128
  2. FUROSEMIDE [Concomitant]
  3. CAPOTEN [Concomitant]
  4. SPIRROLACTAN [Concomitant]
  5. CALCIUM CARBONATE [Concomitant]
  6. INDOCID [Concomitant]
  7. L-THYROXINE [Concomitant]
  8. D-CURE [Concomitant]
  9. ZANTAC [Concomitant]
  10. CLAMOXYL [Concomitant]
  11. NEORECORMON [Concomitant]
  12. HUMAN ALBUMIN [Concomitant]

REACTIONS (2)
  - Hypophagia [Not Recovered/Not Resolved]
  - Vomiting [Recovered/Resolved]
